FAERS Safety Report 20579533 (Version 1)
Quarter: 2022Q1

REPORT INFORMATION
  Report Type: Spontaneous
  Country: CN (occurrence: CN)
  Receive Date: 20220310
  Receipt Date: 20220310
  Transmission Date: 20220423
  Serious: Yes (Other)
  Sender: FDA-Public Use
  Company Number: CN-ABBVIE-22K-035-4306556-00

PATIENT
  Age: 77 Year
  Sex: Female

DRUGS (6)
  1. VENETOCLAX [Suspect]
     Active Substance: VENETOCLAX
     Indication: Acute myeloid leukaemia
     Dosage: DAY 1, INDUCTION THERAPY
     Route: 048
  2. VENETOCLAX [Suspect]
     Active Substance: VENETOCLAX
     Dosage: DAY 2, INDUCTION THERAPY
     Route: 048
  3. VENETOCLAX [Suspect]
     Active Substance: VENETOCLAX
     Dosage: DAY 3 TO 7, INDUCTION THERAPY
     Route: 048
  4. AZACITIDINE [Suspect]
     Active Substance: AZACITIDINE
     Indication: Acute myeloid leukaemia
     Dosage: 2 CYCLES, DAY 1 TO DAY 7
     Route: 065
  5. GILTERITINIB [Suspect]
     Active Substance: GILTERITINIB
     Indication: Acute myeloid leukaemia
     Dosage: DAY 1-7, INDUCTION THERAPY
     Route: 065
  6. GILTERITINIB [Suspect]
     Active Substance: GILTERITINIB
     Dosage: CONSOLIDATION/MAINTENANCE THERAPY
     Route: 065

REACTIONS (4)
  - Agranulocytosis [Recovered/Resolved]
  - Acute myeloid leukaemia recurrent [Recovered/Resolved]
  - Neutropenia [Recovered/Resolved]
  - Drug ineffective [Unknown]
